FAERS Safety Report 8967770 (Version 1)
Quarter: 2012Q4

REPORT INFORMATION
  Report Type: 
  Country: JP (occurrence: JP)
  Receive Date: 20121218
  Receipt Date: 20121218
  Transmission Date: 20130627
  Serious: Yes (Hospitalization, Other)
  Sender: FDA-Public Use
  Company Number: PHHY2012JP113657

PATIENT
  Age: 47 Year
  Sex: Female

DRUGS (5)
  1. TRIAZOLAM [Suspect]
     Dosage: 3.5 mg, UNK
  2. IMATINIB [Suspect]
     Indication: CHRONIC MYELOID LEUKAEMIA
     Dosage: 400 mg, per day
  3. IMATINIB [Suspect]
     Dosage: 200 mg, per day
  4. IMATINIB [Suspect]
     Dosage: 2000 mg, UNK
  5. BROTIZOLAM [Suspect]
     Dosage: 12.5 mg, UNK

REACTIONS (4)
  - Coma [Recovered/Resolved]
  - Suicide attempt [Unknown]
  - Muscle spasms [Unknown]
  - Overdose [Unknown]
